FAERS Safety Report 4625508-5 (Version None)
Quarter: 2005Q2

REPORT INFORMATION
  Report Type: 
  Country: None (occurrence: None)
  Receive Date: 20050401
  Receipt Date: 20050324
  Transmission Date: 20051028
  Serious: Yes (Hospitalization)
  Sender: FDA-Public Use
  Company Number: TW-ABBOTT-05P-153-0295418-00

PATIENT
  Age: 48 Year
  Sex: Female
  Weight: 64 kg

DRUGS (1)
  1. REDUCTIL 15MG [Suspect]
     Indication: WEIGHT CONTROL
     Route: 048
     Dates: start: 20050321, end: 20050324

REACTIONS (4)
  - ASTHENIA [None]
  - CYANOSIS [None]
  - MUSCULOSKELETAL STIFFNESS [None]
  - THIRST [None]
